FAERS Safety Report 12529643 (Version 1)
Quarter: 2016Q3

REPORT INFORMATION
  Report Type: Report from Study
  Country: US (occurrence: US)
  Receive Date: 20160706
  Receipt Date: 20160706
  Transmission Date: 20161109
  Serious: Yes (Other)
  Sender: FDA-Public Use
  Company Number: US-AEGERION PHARMACEUTICALS-AEGR002635

PATIENT
  Age: 54 Year
  Sex: Female

DRUGS (2)
  1. JUXTAPID [Suspect]
     Active Substance: LOMITAPIDE MESYLATE
     Dosage: UNK
     Route: 048
     Dates: start: 20160624
  2. JUXTAPID [Suspect]
     Active Substance: LOMITAPIDE MESYLATE
     Indication: TYPE IIA HYPERLIPIDAEMIA
     Dosage: 10 MG, QHS
     Route: 048
     Dates: end: 20160618

REACTIONS (3)
  - Therapy cessation [Recovered/Resolved]
  - Herpes zoster [Unknown]
  - Cellulitis [Unknown]

NARRATIVE: CASE EVENT DATE: 201606
